FAERS Safety Report 19748083 (Version 1)
Quarter: 2021Q3

REPORT INFORMATION
  Report Type: Spontaneous
  Country: US (occurrence: US)
  Receive Date: 20210823
  Receipt Date: 20210823
  Transmission Date: 20211014
  Serious: Yes (Hospitalization)
  Sender: FDA-Public Use
  Company Number: None

PATIENT
  Sex: Female

DRUGS (2)
  1. SILDENAFIL 20 MG TAB [Suspect]
     Active Substance: SILDENAFIL
     Indication: HYPERTENSION
     Dosage: TAKE ONE TABLET BY MOUTH THREE TIMES DAILY
     Route: 048
     Dates: start: 20190308
  2. PROLIA [Concomitant]
     Active Substance: DENOSUMAB

REACTIONS (4)
  - Pneumonia [None]
  - Cellulitis [None]
  - Thrombosis [None]
  - Treatment noncompliance [None]
